FAERS Safety Report 4446539-4 (Version None)
Quarter: 2004Q3

REPORT INFORMATION
  Report Type: 
  Country: None (occurrence: None)
  Receive Date: 20040902
  Receipt Date: 20040812
  Transmission Date: 20050211
  Serious: Yes (Death, Hospitalization)
  Sender: FDA-Public Use
  Company Number: DE_040814112

PATIENT
  Age: 76 Year
  Sex: Female

DRUGS (3)
  1. ZYPREXA [Suspect]
     Indication: PSYCHOTIC DISORDER
     Dosage: 20 MG DAY
  2. NEUROCIL (LEVOMEPROMAZINE MALEATE) [Concomitant]
  3. REMERGIL (MIRTAZAPINE) [Concomitant]

REACTIONS (4)
  - HAEMOLYTIC ANAEMIA [None]
  - IMMOBILE [None]
  - PNEUMONIA [None]
  - POOR VENOUS ACCESS [None]
